FAERS Safety Report 9365074 (Version 1)
Quarter: 2013Q2

REPORT INFORMATION
  Report Type: Spontaneous
  Country: ES (occurrence: ES)
  Receive Date: 20130624
  Receipt Date: 20130624
  Transmission Date: 20140414
  Serious: Yes (Hospitalization)
  Sender: FDA-Public Use
  Company Number: ES-PFIZER INC-2013185722

PATIENT
  Age: 77 Year
  Sex: Female

DRUGS (3)
  1. TRANKIMAZIN [Suspect]
     Dosage: 0.25 MG, AS NEEDED
     Route: 048
     Dates: start: 2012, end: 20120404
  2. DIAZEPAM [Interacting]
     Indication: MUSCLE CONTRACTURE
     Dosage: UNK
     Route: 048
     Dates: start: 201204, end: 20120404
  3. MYOLASTAN [Interacting]
     Indication: MUSCLE CONTRACTURE
     Dosage: 50 MG, UNK
     Route: 048
     Dates: start: 201204, end: 20120404

REACTIONS (3)
  - Hypoxic-ischaemic encephalopathy [Recovered/Resolved]
  - Depressed level of consciousness [Recovered/Resolved]
  - Drug interaction [Recovered/Resolved]
